FAERS Safety Report 6207987-5 (Version None)
Quarter: 2009Q2

REPORT INFORMATION
  Report Type: 
  Country: None (occurrence: None)
  Receive Date: 20090529
  Receipt Date: 20090212
  Transmission Date: 20091009
  Serious: No
  Sender: FDA-Public Use
  Company Number: A0768490A

PATIENT
  Age: 5 Year
  Sex: Female

DRUGS (2)
  1. VENTOLIN [Suspect]
     Indication: ASTHMA
     Dosage: 2PUFF VARIABLE DOSE
     Route: 055
     Dates: start: 20090209
  2. NO CONCURRENT MEDICATION [Concomitant]

REACTIONS (4)
  - COUGH [None]
  - PYREXIA [None]
  - THROAT IRRITATION [None]
  - VOMITING [None]
